FAERS Safety Report 6919446-2 (Version None)
Quarter: 2010Q3

REPORT INFORMATION
  Report Type: 
  Country: None (occurrence: None)
  Receive Date: 20100811
  Receipt Date: 20100804
  Transmission Date: 20110219
  Serious: Yes (Death)
  Sender: FDA-Public Use
  Company Number: B0668165A

PATIENT
  Sex: Male

DRUGS (5)
  1. PAXIL [Suspect]
     Indication: DEPRESSION
     Dosage: 20MG PER DAY
     Route: 048
     Dates: start: 20100711, end: 20100726
  2. LENDORMIN [Concomitant]
     Dosage: .25MG PER DAY
     Route: 048
  3. INHIBACE [Concomitant]
     Dosage: .5MG PER DAY
     Route: 048
  4. NORVASC [Concomitant]
     Dosage: 5MG PER DAY
     Route: 048
  5. DOXAZOSIN MESYLATE [Concomitant]
     Dosage: .5MG PER DAY
     Route: 048

REACTIONS (1)
  - COMPLETED SUICIDE [None]
